FAERS Safety Report 15661077 (Version 1)
Quarter: 2018Q4

REPORT INFORMATION
  Report Type: Spontaneous
  Country: PL (occurrence: PL)
  Receive Date: 20181127
  Receipt Date: 20181127
  Transmission Date: 20190205
  Serious: Yes (Other)
  Sender: FDA-Public Use
  Company Number: PL-JNJFOC-20181128479

PATIENT
  Age: 60 Year
  Sex: Female

DRUGS (6)
  1. PACLITAXEL. [Suspect]
     Active Substance: PACLITAXEL
     Indication: INVASIVE BREAST CARCINOMA
     Route: 065
  2. CYCLOPHOSPHAMIDE. [Suspect]
     Active Substance: CYCLOPHOSPHAMIDE
     Indication: INVASIVE BREAST CARCINOMA
     Route: 065
  3. DOXORUBICIN HYDROCHLORIDE. [Suspect]
     Active Substance: DOXORUBICIN HYDROCHLORIDE
     Indication: INVASIVE BREAST CARCINOMA
     Route: 065
  4. EGISTROZOL [Suspect]
     Active Substance: ANASTROZOLE
     Indication: INVASIVE BREAST CARCINOMA
     Route: 065
  5. TAMOXIFEN [Suspect]
     Active Substance: TAMOXIFEN
     Indication: INVASIVE BREAST CARCINOMA
     Route: 065
  6. FASLODEX [Suspect]
     Active Substance: FULVESTRANT
     Indication: PRODUCT USED FOR UNKNOWN INDICATION
     Route: 065
     Dates: start: 20180412

REACTIONS (5)
  - Lung neoplasm malignant [Unknown]
  - Metastases to bone [Unknown]
  - Metastases to spine [Unknown]
  - Breast cancer in situ [Unknown]
  - Lymphadenitis [Unknown]

NARRATIVE: CASE EVENT DATE: 201803
